FAERS Safety Report 6887823-4 (Version None)
Quarter: 2010Q3

REPORT INFORMATION
  Report Type: 
  Country: None (occurrence: None)
  Receive Date: 20100730
  Receipt Date: 20100720
  Transmission Date: 20110219
  Serious: Yes (Disabling, Other)
  Sender: FDA-Public Use
  Company Number: DK-JNJFOC-20100706714

PATIENT
  Sex: Female
  Weight: 93.5 kg

DRUGS (4)
  1. REMICADE [Suspect]
     Indication: RHEUMATOID ARTHRITIS
     Route: 042
  2. FOLIMET [Concomitant]
     Dosage: 5 MG TABLET
     Route: 048
  3. METHOTREXATE [Concomitant]
     Route: 048
  4. PREDNISOLONE [Concomitant]
     Route: 048

REACTIONS (4)
  - ANTINUCLEAR ANTIBODY POSITIVE [None]
  - DNA ANTIBODY POSITIVE [None]
  - LUPUS-LIKE SYNDROME [None]
  - MYALGIA [None]
